FAERS Safety Report 17717228 (Version 1)
Quarter: 2020Q2

REPORT INFORMATION
  Report Type: Spontaneous
  Country: DE (occurrence: DE)
  Receive Date: 20200428
  Receipt Date: 20200428
  Transmission Date: 20200714
  Serious: Yes (Other)
  Sender: FDA-Public Use
  Company Number: DE-HORMOSAN PHARMA GMBH-2020-01781

PATIENT
  Sex: Female

DRUGS (1)
  1. QUETIAPIN-HORMOSAN 100 MG FILMTABLETTEN [Suspect]
     Active Substance: QUETIAPINE FUMARATE
     Indication: PRODUCT USED FOR UNKNOWN INDICATION
     Dosage: UNK
     Route: 065

REACTIONS (3)
  - Paralysis [Unknown]
  - Hypotonia [Unknown]
  - Mobility decreased [Unknown]

NARRATIVE: CASE EVENT DATE: 202004
